FAERS Safety Report 11253641 (Version 2)
Quarter: 2016Q1

REPORT INFORMATION
  Report Type: Spontaneous
  Country: JP (occurrence: JP)
  Receive Date: 20150709
  Receipt Date: 20160204
  Transmission Date: 20160525
  Serious: Yes (Death)
  Sender: FDA-Public Use
  Company Number: JP-MALLINCKRODT-T201502598

PATIENT
  Age: 48 Year
  Sex: Female

DRUGS (7)
  1. METHADONE [Suspect]
     Active Substance: METHADONE HYDROCHLORIDE
     Indication: CANCER PAIN
     Dosage: 10 MG TAB (30 MG DAILY DOSE)
     Route: 048
     Dates: start: 20150407
  2. VECTIBIX [Concomitant]
     Active Substance: PANITUMUMAB
     Dosage: 220 MG
     Route: 051
     Dates: start: 20141110, end: 20150608
  3. ZYPREXA [Concomitant]
     Active Substance: OLANZAPINE
     Dosage: 2.5 MG
     Route: 048
     Dates: start: 20150414, end: 20150420
  4. FENTANYL. [Concomitant]
     Active Substance: FENTANYL
     Dosage: 5- 8  MCG, PRN
     Route: 051
     Dates: start: 20150406, end: 20150410
  5. ABSTRAL [Concomitant]
     Active Substance: FENTANYL CITRATE
     Dosage: 0.1 MG, PRN
     Route: 060
     Dates: start: 20150411
  6. FENTANYL. [Concomitant]
     Active Substance: FENTANYL
     Dosage: 1440 MCG
     Route: 051
     Dates: start: 20150319
  7. METOCLOPRAMIDE. [Concomitant]
     Active Substance: METOCLOPRAMIDE
     Dosage: 10 MG
     Route: 051
     Dates: end: 20150413

REACTIONS (3)
  - Vomiting [Recovering/Resolving]
  - Somnolence [Recovered/Resolved]
  - Rectal cancer [Fatal]

NARRATIVE: CASE EVENT DATE: 20150411
